FAERS Safety Report 21783609 (Version 20)
Quarter: 2023Q4

REPORT INFORMATION
  Report Type: Report from Study
  Country: JP (occurrence: None)
  Receive Date: 20221227
  Receipt Date: 20231003
  Transmission Date: 20240110
  Serious: Yes (Hospitalization)
  Sender: FDA-Public Use
  Company Number: JP-Eisai Medical Research-EC-2022-119395

PATIENT
  Age: 76 Year
  Sex: Male
  Weight: 66.6 kg

DRUGS (15)
  1. LENVATINIB [Suspect]
     Active Substance: LENVATINIB
     Indication: Clear cell renal cell carcinoma
     Dosage: STARTING DOSE: 20 MILLIGRAM, FLUCTUATED DOSAGE
     Route: 048
     Dates: start: 20220222, end: 20220629
  2. LENVATINIB [Suspect]
     Active Substance: LENVATINIB
     Dosage: STARTING DOSE: 10 MILLIGRAM, FLUCTUATED DOSAGE
     Route: 048
     Dates: start: 20220817, end: 20221118
  3. LENVATINIB [Suspect]
     Active Substance: LENVATINIB
     Route: 048
     Dates: start: 20230517
  4. PEMBROLIZUMAB [Suspect]
     Active Substance: PEMBROLIZUMAB
     Indication: Clear cell renal cell carcinoma
     Dosage: QUAVONLIMAB 25 MILLIGRAM + PEMBROLIZUMAB 400 MILLIGRAM
     Route: 042
     Dates: start: 20220222, end: 20220629
  5. PEMBROLIZUMAB [Suspect]
     Active Substance: PEMBROLIZUMAB
     Dosage: QUAVONLIMAB 25 MILLIGRAM + PEMBROLIZUMAB 400 MILLIGRAM
     Route: 042
     Dates: start: 20220928, end: 20221109
  6. PEMBROLIZUMAB [Suspect]
     Active Substance: PEMBROLIZUMAB
     Dosage: QUAVONLIMAB 25 MILLIGRAM + PEMBROLIZUMAB 400 MILLIGRAM
     Route: 042
     Dates: start: 20221221
  7. LANSOPRAZOLE [Concomitant]
     Active Substance: LANSOPRAZOLE
     Dates: start: 200001, end: 20221118
  8. FEBUXOSTAT [Concomitant]
     Active Substance: FEBUXOSTAT
     Dates: start: 200001, end: 20221118
  9. BROMFENAC SODIUM [Concomitant]
     Active Substance: BROMFENAC SODIUM
     Dosage: RINSE
     Dates: start: 200001
  10. IRBESARTAN [Concomitant]
     Active Substance: IRBESARTAN
     Dates: start: 200001, end: 20221118
  11. ASPIRIN [Concomitant]
     Active Substance: ASPIRIN
     Dates: start: 200001, end: 20221118
  12. AMLODIPINE [Concomitant]
     Active Substance: AMLODIPINE BESYLATE
     Dates: start: 200001, end: 20221118
  13. QUAVONLIMAB [Suspect]
     Active Substance: QUAVONLIMAB
  14. QUAVONLIMAB [Suspect]
     Active Substance: QUAVONLIMAB
  15. QUAVONLIMAB [Suspect]
     Active Substance: QUAVONLIMAB

REACTIONS (4)
  - Acute kidney injury [Recovered/Resolved]
  - Adrenal insufficiency [Recovering/Resolving]
  - Hypoxia [Recovered/Resolved]
  - Anaemia [Not Recovered/Not Resolved]

NARRATIVE: CASE EVENT DATE: 20220708
